FAERS Safety Report 10311880 (Version 1)
Quarter: 2014Q3

REPORT INFORMATION
  Report Type: Spontaneous
  Country: DE (occurrence: DE)
  Receive Date: 20140717
  Receipt Date: 20140717
  Transmission Date: 20150326
  Serious: Yes (Other)
  Sender: FDA-Public Use
  Company Number: DE-MYLANLABS-2014S1016065

PATIENT
  Age: 40 Year
  Sex: Female
  Weight: 95 kg

DRUGS (2)
  1. LEVOFLOXACIN [Suspect]
     Active Substance: LEVOFLOXACIN
     Indication: DIVERTICULITIS
     Route: 048
  2. CIPROFLOXACIN. [Suspect]
     Active Substance: CIPROFLOXACIN
     Indication: DIVERTICULITIS
     Dosage: 10X 500MG 1-0-1
     Route: 048
     Dates: start: 201207

REACTIONS (14)
  - Cartilage injury [Unknown]
  - Parosmia [Unknown]
  - Hyperacusis [Unknown]
  - Fatigue [Unknown]
  - Exercise tolerance decreased [Unknown]
  - Restlessness [Unknown]
  - Arrhythmia [Unknown]
  - Disturbance in attention [Unknown]
  - Asthma [Unknown]
  - Arthralgia [Unknown]
  - Memory impairment [Unknown]
  - Back pain [Unknown]
  - Musculoskeletal stiffness [Unknown]
  - Headache [Unknown]

NARRATIVE: CASE EVENT DATE: 201211
